FAERS Safety Report 13571605 (Version 2)
Quarter: 2017Q2

REPORT INFORMATION
  Report Type: Spontaneous
  Country: US (occurrence: US)
  Receive Date: 20170523
  Receipt Date: 20170526
  Transmission Date: 20170830
  Serious: Yes (Death, Hospitalization)
  Sender: FDA-Public Use
  Company Number: US-UNITED THERAPEUTICS-UNT-2017-007422

PATIENT
  Age: 75 Year
  Sex: Male
  Weight: 79.37 kg

DRUGS (2)
  1. REMODULIN [Suspect]
     Active Substance: TREPROSTINIL
     Indication: PULMONARY ARTERIAL HYPERTENSION
     Dosage: 0.07 ?G/KG, CONTINUING
     Route: 041
     Dates: start: 20140815
  2. XARELTO [Concomitant]
     Active Substance: RIVAROXABAN
     Indication: PRODUCT USED FOR UNKNOWN INDICATION

REACTIONS (4)
  - Hypoxia [Unknown]
  - Dyspnoea [Unknown]
  - Pulmonary arterial hypertension [Fatal]
  - Refusal of treatment by patient [Unknown]

NARRATIVE: CASE EVENT DATE: 201705
